FAERS Safety Report 24971895 (Version 1)
Quarter: 2025Q1

REPORT INFORMATION
  Report Type: Spontaneous
  Country: US (occurrence: US)
  Receive Date: 20250214
  Receipt Date: 20250214
  Transmission Date: 20250408
  Serious: Yes (Other)
  Sender: SANOFI AVENTIS
  Company Number: US-SA-2025SA044946

PATIENT
  Sex: Female

DRUGS (20)
  1. KEVZARA [Suspect]
     Active Substance: SARILUMAB
     Indication: Rheumatoid arthritis
     Dosage: 200 MG, QOW
     Route: 058
  2. HYDROXYZINE [Concomitant]
     Active Substance: HYDROXYZINE HYDROCHLORIDE
  3. BRILINTA [Concomitant]
     Active Substance: TICAGRELOR
  4. CALCIUM [Concomitant]
     Active Substance: CALCIUM
  5. FARXIGA [Concomitant]
     Active Substance: DAPAGLIFLOZIN PROPANEDIOL
  6. GABAPENTIN [Concomitant]
     Active Substance: GABAPENTIN
  7. HYDROCODONE [Concomitant]
     Active Substance: HYDROCODONE
  8. LANSOPRAZOLE [Concomitant]
     Active Substance: LANSOPRAZOLE
  9. LORATADINE [Concomitant]
     Active Substance: LORATADINE
  10. LOSARTAN POTASSIUM [Concomitant]
     Active Substance: LOSARTAN POTASSIUM
  11. MAGNESIUM [Concomitant]
     Active Substance: MAGNESIUM
  12. METHOCARBAMOL [Concomitant]
     Active Substance: METHOCARBAMOL
  13. MONTELUKAST [Concomitant]
     Active Substance: MONTELUKAST
  14. ONDANSETRON [Concomitant]
     Active Substance: ONDANSETRON
  15. PRAMIPEXOLE [Concomitant]
     Active Substance: PRAMIPEXOLE
  16. SERTRALINE [Concomitant]
     Active Substance: SERTRALINE HYDROCHLORIDE
  17. SPIRONOLACTONE [Concomitant]
     Active Substance: SPIRONOLACTONE
  18. TRELEGY ELLIPTA [Concomitant]
     Active Substance: FLUTICASONE FUROATE\UMECLIDINIUM BROMIDE\VILANTEROL TRIFENATATE
  19. VITAMIN D NOS [Concomitant]
     Active Substance: CHOLECALCIFEROL\ERGOCALCIFEROL
  20. VITAMIN E [Concomitant]
     Active Substance: .ALPHA.-TOCOPHEROL

REACTIONS (3)
  - Rheumatoid arthritis [Unknown]
  - Joint stiffness [Unknown]
  - Gait disturbance [Unknown]
